FAERS Safety Report 13956421 (Version 2)
Quarter: 2017Q4

REPORT INFORMATION
  Report Type: Spontaneous
  Country: FR (occurrence: FR)
  Receive Date: 20170911
  Receipt Date: 20171025
  Transmission Date: 20180320
  Serious: Yes (Other)
  Sender: FDA-Public Use
  Company Number: FR-MERCK KGAA-2025881

PATIENT
  Age: 37 Year
  Sex: Female
  Weight: 53 kg

DRUGS (1)
  1. NOVOTHYROX [Suspect]
     Active Substance: LEVOTHYROXINE SODIUM
     Indication: BLOOD THYROID STIMULATING HORMONE DECREASED
     Route: 048
     Dates: start: 20170601

REACTIONS (8)
  - Dizziness [Not Recovered/Not Resolved]
  - Disturbance in attention [Not Recovered/Not Resolved]
  - Weight increased [Not Recovered/Not Resolved]
  - Irritability [Not Recovered/Not Resolved]
  - Impatience [Not Recovered/Not Resolved]
  - Fatigue [Not Recovered/Not Resolved]
  - Abdominal distension [Not Recovered/Not Resolved]
  - Blood thyroid stimulating hormone increased [Not Recovered/Not Resolved]

NARRATIVE: CASE EVENT DATE: 201707
